FAERS Safety Report 24867987 (Version 1)
Quarter: 2025Q1

REPORT INFORMATION
  Report Type: Spontaneous
  Country: CA (occurrence: CA)
  Receive Date: 20250121
  Receipt Date: 20250121
  Transmission Date: 20250409
  Serious: Yes (Other)
  Sender: KARYOPHARM THERAPEUTICS
  Company Number: CA-KARYOPHARM-2024KPT001080

PATIENT

DRUGS (7)
  1. XPOVIO [Suspect]
     Active Substance: SELINEXOR
     Indication: Plasma cell myeloma
     Dosage: TAKE 4 TABLETS (TO EQUAL 80MG) BY MOUTH ONCE WEEKLY FOR 5 WEEKS
     Route: 048
     Dates: start: 20240509, end: 2024
  2. XPOVIO [Suspect]
     Active Substance: SELINEXOR
     Route: 048
     Dates: start: 202407, end: 2024
  3. XPOVIO [Suspect]
     Active Substance: SELINEXOR
     Dosage: 60 MG, WEEKLY FOR 5 DOSES
     Route: 048
     Dates: start: 202408, end: 2024
  4. XPOVIO [Suspect]
     Active Substance: SELINEXOR
     Dosage: 40 MG, WEEKLY
     Route: 048
     Dates: start: 202411, end: 20250110
  5. BORTEZOMIB [Concomitant]
     Active Substance: BORTEZOMIB
  6. DEXAMETHASONE [Concomitant]
     Active Substance: DEXAMETHASONE
  7. HYDROMORPHONE [Concomitant]
     Active Substance: HYDROMORPHONE

REACTIONS (33)
  - Neuropathy peripheral [Unknown]
  - Cataract [Unknown]
  - Headache [Recovered/Resolved]
  - Abdominal discomfort [Recovered/Resolved]
  - Hiccups [Not Recovered/Not Resolved]
  - Feeling abnormal [Not Recovered/Not Resolved]
  - Irritability [Unknown]
  - Blood phosphorus decreased [Not Recovered/Not Resolved]
  - Dysgeusia [Not Recovered/Not Resolved]
  - Tooth disorder [Unknown]
  - Taste disorder [Not Recovered/Not Resolved]
  - Myalgia [Unknown]
  - Feeding disorder [Not Recovered/Not Resolved]
  - Protein total decreased [Unknown]
  - Appetite disorder [Not Recovered/Not Resolved]
  - Dry mouth [Unknown]
  - Heart rate increased [Recovered/Resolved]
  - Cardiac disorder [Unknown]
  - Renal disorder [Unknown]
  - Drug intolerance [Unknown]
  - Hernia [Unknown]
  - Glomerular filtration rate decreased [Unknown]
  - Discomfort [Not Recovered/Not Resolved]
  - Limb discomfort [Unknown]
  - Fatigue [Not Recovered/Not Resolved]
  - Nausea [Recovering/Resolving]
  - Confusional state [Unknown]
  - Platelet count decreased [Unknown]
  - Weight decreased [Not Recovered/Not Resolved]
  - Haemoglobin decreased [Unknown]
  - Blood creatinine increased [Unknown]
  - Asthenia [Unknown]
  - Product administration error [Unknown]

NARRATIVE: CASE EVENT DATE: 20240101
